FAERS Safety Report 8056029-8 (Version None)
Quarter: 2011Q4

REPORT INFORMATION
  Report Type: 
  Country: None (occurrence: None)
  Receive Date: 20111216
  Receipt Date: 20110310
  Transmission Date: 20120403
  Serious: Yes (Other)
  Sender: FDA-Public Use
  Company Number: 268025USA

PATIENT
  Age: 23 Year
  Sex: Female
  Weight: 69.8539 kg

DRUGS (1)
  1. PARAGARD T 380A [Suspect]
     Indication: CONTRACEPTION
     Dosage: I.U
     Dates: start: 20100407, end: 20110219

REACTIONS (6)
  - DEVICE EXPULSION [None]
  - ABORTION SPONTANEOUS [None]
  - DRUG INEFFECTIVE [None]
  - PREGNANCY WITH CONTRACEPTIVE DEVICE [None]
  - MENSTRUATION DELAYED [None]
  - VAGINAL DISCHARGE [None]
